FAERS Safety Report 11532875 (Version 1)
Quarter: 2015Q3

REPORT INFORMATION
  Report Type: Spontaneous
  Country: TR (occurrence: TR)
  Receive Date: 20150921
  Receipt Date: 20150921
  Transmission Date: 20151125
  Serious: Yes (Hospitalization)
  Sender: FDA-Public Use
  Company Number: TR-MYLANLABS-2015M1031462

PATIENT

DRUGS (2)
  1. THIAMAZOLE [Suspect]
     Active Substance: METHIMAZOLE
     Indication: HYPERTHYROIDISM
     Route: 065
  2. PROPRANOLOL [Concomitant]
     Active Substance: PROPRANOLOL\PROPRANOLOL HYDROCHLORIDE
     Indication: HYPERTHYROIDISM
     Route: 065

REACTIONS (2)
  - Tonsillitis [Recovering/Resolving]
  - Agranulocytosis [Recovered/Resolved]
